FAERS Safety Report 20609237 (Version 2)
Quarter: 2022Q1

REPORT INFORMATION
  Report Type: Spontaneous
  Country: DK (occurrence: DK)
  Receive Date: 20220317
  Receipt Date: 20220325
  Transmission Date: 20220423
  Serious: Yes (Death)
  Sender: FDA-Public Use
  Company Number: None

PATIENT
  Age: 66 Year
  Sex: Female

DRUGS (2)
  1. TECENTRIQ [Suspect]
     Active Substance: ATEZOLIZUMAB
     Indication: Neoplasm malignant
     Dosage: STRENGTH: 1200 MG IN 250ML NACL, MOST RECENT DOSE ON 18/JAN/2022.
     Route: 042
     Dates: start: 20220118, end: 20220118
  2. ELIQUIS [Concomitant]
     Active Substance: APIXABAN
     Indication: Thrombosis prophylaxis
     Route: 048
     Dates: start: 20211112

REACTIONS (10)
  - Depressed level of consciousness [Fatal]
  - Haemophagocytic lymphohistiocytosis [Fatal]
  - Agitation [Fatal]
  - Paraesthesia [Fatal]
  - Restlessness [Fatal]
  - Encephalitis [Fatal]
  - Haemophagocytic lymphohistiocytosis [Fatal]
  - Encephalopathy [Fatal]
  - Pyrexia [Fatal]
  - Rash maculo-papular [Fatal]

NARRATIVE: CASE EVENT DATE: 20220130
